FAERS Safety Report 4372864-1 (Version None)
Quarter: 2004Q2

REPORT INFORMATION
  Report Type: 
  Country: None (occurrence: None)
  Receive Date: 20040603
  Receipt Date: 20040519
  Transmission Date: 20050107
  Serious: Yes (Death, Other)
  Sender: FDA-Public Use
  Company Number: US_0405103167

PATIENT
  Sex: Male

DRUGS (2)
  1. PROZAC [Suspect]
  2. LEXAPRO [Concomitant]

REACTIONS (3)
  - AKATHISIA [None]
  - COMPLETED SUICIDE [None]
  - INSOMNIA [None]
